FAERS Safety Report 7442536-5 (Version None)
Quarter: 2011Q2

REPORT INFORMATION
  Report Type: 
  Country: None (occurrence: None)
  Receive Date: 20110425
  Receipt Date: 20110425
  Transmission Date: 20111010
  Serious: No
  Sender: FDA-Public Use
  Company Number: None

PATIENT
  Age: 56 Year
  Sex: Male
  Weight: 106.1417 kg

DRUGS (1)
  1. VERAMYST [Suspect]
     Indication: NASAL CONGESTION
     Dates: start: 20110414, end: 20110421

REACTIONS (5)
  - EPISTAXIS [None]
  - DIZZINESS [None]
  - VISION BLURRED [None]
  - RASH [None]
  - HEADACHE [None]
